FAERS Safety Report 7223429-5 (Version None)
Quarter: 2011Q1

REPORT INFORMATION
  Report Type: 
  Country: None (occurrence: None)
  Receive Date: 20110112
  Receipt Date: 20100524
  Transmission Date: 20110831
  Serious: No
  Sender: FDA-Public Use
  Company Number: US-ALLERGAN-1006771US

PATIENT
  Age: 62 Year
  Sex: Female

DRUGS (3)
  1. RESTASIS [Suspect]
     Indication: DRY EYE
     Dosage: 1 GTT, BID
     Dates: start: 20100507
  2. NEXIUM [Concomitant]
     Indication: REFLUX GASTRITIS
  3. SYNTHROID [Concomitant]
     Indication: HYPOTHYROIDISM

REACTIONS (4)
  - EYE IRRITATION [None]
  - OCULAR HYPERAEMIA [None]
  - VISION BLURRED [None]
  - FOREIGN BODY SENSATION IN EYES [None]
